FAERS Safety Report 8609683-3 (Version None)
Quarter: 2012Q3

REPORT INFORMATION
  Report Type: 
  Country: None (occurrence: None)
  Receive Date: 20120821
  Receipt Date: 20120814
  Transmission Date: 20120928
  Serious: Yes (Disabling)
  Sender: FDA-Public Use
  Company Number: US-FRI-1000037883

PATIENT
  Age: 70 Year
  Sex: Male

DRUGS (1)
  1. DALIRESP [Suspect]
     Indication: CHRONIC OBSTRUCTIVE PULMONARY DISEASE
     Dosage: 500 MCG
     Route: 048
     Dates: start: 20120425, end: 20120501

REACTIONS (5)
  - INSOMNIA [None]
  - DIARRHOEA [None]
  - VASCULITIS [None]
  - ARTHRALGIA [None]
  - SKIN DISORDER [None]
